FAERS Safety Report 19195653 (Version 1)
Quarter: 2021Q2

REPORT INFORMATION
  Report Type: Spontaneous
  Country: US (occurrence: US)
  Receive Date: 20210429
  Receipt Date: 20210429
  Transmission Date: 20210717
  Serious: No
  Sender: FDA-Public Use
  Company Number: US-ASTRAZENECA-2021A331802

PATIENT
  Sex: Male
  Weight: 83 kg

DRUGS (2)
  1. BYETTA [Suspect]
     Active Substance: EXENATIDE
     Indication: DIABETES MELLITUS
     Route: 065
  2. BYDUREON BCISE [Suspect]
     Active Substance: EXENATIDE
     Indication: DIABETES MELLITUS
     Route: 065

REACTIONS (9)
  - Blood glucose increased [Recovered/Resolved]
  - Vertigo [Unknown]
  - Fatigue [Unknown]
  - Device defective [Unknown]
  - Incorrect dose administered by device [Unknown]
  - Abdominal discomfort [Recovered/Resolved]
  - Device leakage [Unknown]
  - Dizziness [Unknown]
  - Wrong technique in product usage process [Unknown]

NARRATIVE: CASE EVENT DATE: 20210418
